FAERS Safety Report 4619082-7 (Version None)
Quarter: 2005Q1

REPORT INFORMATION
  Report Type: 
  Country: None (occurrence: None)
  Receive Date: 20050315
  Receipt Date: 20050315
  Transmission Date: 20050727
  Serious: No
  Sender: FDA-Public Use
  Company Number: None

PATIENT
  Age: 58 Year
  Sex: Female
  Weight: 63.5036 kg

DRUGS (1)
  1. SINEMET CR [Suspect]
     Indication: DYSTONIA
     Dosage: BID

REACTIONS (5)
  - CONDITION AGGRAVATED [None]
  - DRUG INEFFECTIVE [None]
  - DYSTONIA [None]
  - HEMIPARESIS [None]
  - PHARMACEUTICAL PRODUCT COMPLAINT [None]
